FAERS Safety Report 23313121 (Version 5)
Quarter: 2024Q2

REPORT INFORMATION
  Report Type: Spontaneous
  Country: US (occurrence: US)
  Receive Date: 20231219
  Receipt Date: 20240430
  Transmission Date: 20240716
  Serious: No
  Sender: FDA-Public Use
  Company Number: US-PFIZER INC-PV202300201831

PATIENT
  Age: 58 Year
  Sex: Female

DRUGS (1)
  1. INLYTA [Suspect]
     Active Substance: AXITINIB
     Dosage: UNK

REACTIONS (11)
  - Dysphonia [Unknown]
  - Pain [Unknown]
  - Muscle tightness [Unknown]
  - Arthralgia [Unknown]
  - Viral infection [Unknown]
  - Stomatitis [Unknown]
  - Fatigue [Unknown]
  - Headache [Unknown]
  - Hypertension [Unknown]
  - Dehydration [Unknown]
  - Product dose omission issue [Unknown]
